FAERS Safety Report 17345621 (Version 1)
Quarter: 2020Q1

REPORT INFORMATION
  Report Type: Spontaneous
  Country: BR (occurrence: BR)
  Receive Date: 20200129
  Receipt Date: 20200129
  Transmission Date: 20200409
  Serious: Yes (Death)
  Sender: FDA-Public Use
  Company Number: BR-BAYER-2019-236733

PATIENT
  Age: 37 Year
  Sex: Female

DRUGS (1)
  1. XOFIGO [Suspect]
     Active Substance: RADIUM RA-223 DICHLORIDE
     Indication: BREAST CANCER
     Dosage: UNK
     Dates: start: 20200119, end: 20200119

REACTIONS (3)
  - Off label use [None]
  - Product use in unapproved indication [None]
  - Breast cancer [Fatal]

NARRATIVE: CASE EVENT DATE: 20200125
